FAERS Safety Report 15598662 (Version 2)
Quarter: 2018Q4

REPORT INFORMATION
  Report Type: Spontaneous
  Country: JP (occurrence: JP)
  Receive Date: 20181108
  Receipt Date: 20181120
  Transmission Date: 20190205
  Serious: Yes (Hospitalization, Other)
  Sender: FDA-Public Use
  Company Number: PHJP2018JP018829

PATIENT
  Age: 78 Year
  Sex: Male
  Weight: 79 kg

DRUGS (1)
  1. FLUVASTATIN [Suspect]
     Active Substance: FLUVASTATIN SODIUM
     Indication: DYSLIPIDAEMIA
     Dosage: UNK
     Route: 048

REACTIONS (9)
  - Muscular weakness [Unknown]
  - Cellulitis [Recovering/Resolving]
  - Acute kidney injury [Recovering/Resolving]
  - Crush injury [Unknown]
  - Erythema [Unknown]
  - Feeling hot [Unknown]
  - Rhabdomyolysis [Recovered/Resolved]
  - Tenderness [Unknown]
  - Sepsis [Unknown]
